FAERS Safety Report 24648353 (Version 1)
Quarter: 2024Q4

REPORT INFORMATION
  Report Type: Spontaneous
  Country: CN (occurrence: CN)
  Receive Date: 20241121
  Receipt Date: 20241121
  Transmission Date: 20250115
  Serious: Yes (Other)
  Sender: FRESENIUS KABI
  Company Number: CN-FreseniusKabi-FK202417054

PATIENT
  Age: 5 Day
  Sex: Male

DRUGS (3)
  1. SMOFLIPID [Suspect]
     Active Substance: FISH OIL\MEDIUM-CHAIN TRIGLYCERIDES\OLIVE OIL\SOYBEAN OIL
     Indication: Premature baby
     Dosage: FORM OF ADMINISTRATION: INJECTION
     Route: 041
     Dates: start: 20241026, end: 20241031
  2. VITAMINS [Concomitant]
     Active Substance: VITAMINS
     Indication: Premature baby
     Dosage: FOA: POWDER FOR INJECTION
     Route: 041
     Dates: start: 20241026, end: 20241031
  3. Fat-soluble Vitamin for Injection (I) [Concomitant]
     Indication: Premature baby
     Dosage: FOA: POWDER FOR INJECTION
     Route: 041
     Dates: start: 20241026, end: 20241031

REACTIONS (4)
  - Pulmonary arterial hypertension [Unknown]
  - Hypertriglyceridaemia [Unknown]
  - Septic shock [Unknown]
  - Neonatal hyperglycaemia [Unknown]

NARRATIVE: CASE EVENT DATE: 20241030
